FAERS Safety Report 9492065 (Version 2)
Quarter: 2013Q3

REPORT INFORMATION
  Report Type: Spontaneous
  Country: JP (occurrence: JP)
  Receive Date: 20130830
  Receipt Date: 20130916
  Transmission Date: 20140515
  Serious: Yes (Hospitalization)
  Sender: FDA-Public Use
  Company Number: JP-JHP PHARMACEUTICALS, LLC-JHP201300521

PATIENT
  Age: 65 Year
  Sex: Male

DRUGS (2)
  1. DANTRIUM [Suspect]
     Indication: NEUROLEPTIC MALIGNANT SYNDROME
     Dosage: 5 DF, DAILY
     Route: 050
     Dates: end: 2013
  2. DANTRIUM [Suspect]
     Dosage: UNK
     Route: 050
     Dates: start: 20130818, end: 20130825

REACTIONS (2)
  - Dehydration [Recovered/Resolved]
  - Intentional drug misuse [Recovered/Resolved]
